FAERS Safety Report 8530500-4 (Version None)
Quarter: 2012Q2

REPORT INFORMATION
  Report Type: 
  Country: None (occurrence: None)
  Receive Date: 20120411
  Receipt Date: 20111229
  Transmission Date: 20120825
  Serious: No
  Sender: FDA-Public Use
  Company Number: PHEH2011US011821

PATIENT
  Age: 19 Year
  Sex: Female

DRUGS (1)
  1. ILARIS [Suspect]
     Dosage: 150 MG, FOR EVERY 7 WEEKS, SUBCUTANEOUS
     Route: 058
     Dates: start: 20091101

REACTIONS (7)
  - EYE PAIN [None]
  - ARTHRALGIA [None]
  - ABDOMINAL PAIN UPPER [None]
  - EYE IRRITATION [None]
  - NAUSEA [None]
  - INFUSION SITE EXTRAVASATION [None]
  - HEADACHE [None]
